FAERS Safety Report 6261960-X (Version None)
Quarter: 2009Q3

REPORT INFORMATION
  Report Type: 
  Country: None (occurrence: None)
  Receive Date: 20090709
  Receipt Date: 20090304
  Transmission Date: 20100115
  Serious: Yes (Hospitalization)
  Sender: FDA-Public Use
  Company Number: B0582923A

PATIENT
  Age: 57 Year
  Sex: Male
  Weight: 85 kg

DRUGS (6)
  1. OMACOR [Suspect]
     Dosage: 1000MG PER DAY
     Route: 048
     Dates: start: 20050416, end: 20060502
  2. BETA BLOCKERS [Concomitant]
  3. ACE INHIBITORS [Concomitant]
  4. DIURETICS [Concomitant]
  5. ASPIRIN [Concomitant]
  6. STATINS [Concomitant]

REACTIONS (1)
  - GASTRIC ULCER HAEMORRHAGE [None]
